FAERS Safety Report 8777703 (Version 1)
Quarter: 2012Q4

REPORT INFORMATION
  Report Type: Report from Study
  Country: US (occurrence: US)
  Receive Date: 20120912
  Receipt Date: 20120912
  Transmission Date: 20130627
  Serious: No
  Sender: FDA-Public Use
  Company Number: US-VERTEX PHARMACEUTICAL INC.-AE-2012-003952

PATIENT
  Age: 56 Year
  Sex: Female
  Weight: 123.6 kg

DRUGS (13)
  1. VX-950 [Suspect]
     Indication: HEPATITIS C
     Dosage: 750 mg, tid
     Route: 048
     Dates: start: 20120312
  2. COPEGUS [Concomitant]
     Indication: HEPATITIS C
     Dosage: 600 mg, bid
     Route: 048
     Dates: start: 20120312
  3. PEGASYS [Concomitant]
     Indication: HEPATITIS C
     Dosage: 180 ?g, UNK
     Route: 058
     Dates: start: 20120312
  4. AMLODIPINE [Concomitant]
     Route: 048
  5. METOPROLOL [Concomitant]
     Route: 048
  6. BABY ASPIRIN [Concomitant]
     Route: 048
  7. LOSARTIN [Concomitant]
     Route: 048
  8. TRIAMTERENE [Concomitant]
     Route: 048
  9. TRIAMCINOLONE [Concomitant]
  10. HYDROXYZINE [Concomitant]
  11. MVI [Concomitant]
  12. LORATADINE [Concomitant]
  13. FLUTICASONE [Concomitant]

REACTIONS (5)
  - Hypotension [Not Recovered/Not Resolved]
  - Injection site reaction [Unknown]
  - Fatigue [Not Recovered/Not Resolved]
  - Rash macular [Not Recovered/Not Resolved]
  - Pruritus [Unknown]
